FAERS Safety Report 7422061 (Version 2)
Quarter: 2013Q1

REPORT INFORMATION
  Report Type: Spontaneous
  Country: US (occurrence: US)
  Receive Date: 20100616
  Receipt Date: 20130126
  Transmission Date: 20140127
  Serious: No
  Sender: FDA-Public Use
  Company Number: US-ASTRAZENECA-2009UW17392

PATIENT
  Age: 87 Year
  Sex: Female
  Weight: 39.9 kg

DRUGS (12)
  1. PULMICORT FLEXHALER [Suspect]
     Indication: CHRONIC OBSTRUCTIVE PULMONARY DISEASE
     Route: 055
     Dates: start: 2000
  2. PULMICORT FLEXHALER [Suspect]
     Indication: BRONCHIAL DISORDER
     Route: 055
     Dates: start: 2000
  3. PULMICORT FLEXHALER [Suspect]
     Indication: CHRONIC OBSTRUCTIVE PULMONARY DISEASE
     Dosage: GENERIC
     Route: 055
     Dates: start: 2000
  4. PULMICORT FLEXHALER [Suspect]
     Indication: BRONCHIAL DISORDER
     Dosage: GENERIC
     Route: 055
     Dates: start: 2000
  5. TOPROL XL [Suspect]
     Indication: HYPERTENSION
     Route: 048
  6. WARFARIN [Suspect]
     Indication: ATRIAL FIBRILLATION
     Route: 048
     Dates: start: 2010
  7. WARFARIN [Suspect]
     Indication: ATRIAL FIBRILLATION
     Dosage: GENERIC
     Route: 048
     Dates: start: 2010
  8. COMBIVENT [Concomitant]
     Indication: CHRONIC OBSTRUCTIVE PULMONARY DISEASE
  9. VANTERIL [Concomitant]
     Indication: DYSPNOEA
     Dates: start: 1999
  10. PROVENTIL [Concomitant]
     Indication: DYSPNOEA
     Dates: start: 1999
  11. VANCERIL [Concomitant]
     Dosage: 2 PUFFS TWO TIMES A DAY
  12. VIT D [Concomitant]

REACTIONS (9)
  - Weight decreased [Unknown]
  - Epistaxis [Not Recovered/Not Resolved]
  - Hyperthyroidism [Recovered/Resolved]
  - Atrial fibrillation [Recovered/Resolved with Sequelae]
  - Cough [Unknown]
  - Contusion [Not Recovered/Not Resolved]
  - Hypothyroidism [Recovered/Resolved]
  - Osteoporosis [Unknown]
  - Cataract [Unknown]
